FAERS Safety Report 25373063 (Version 2)
Quarter: 2025Q3

REPORT INFORMATION
  Report Type: Spontaneous
  Country: US (occurrence: US)
  Receive Date: 20250529
  Receipt Date: 20250803
  Transmission Date: 20251020
  Serious: Yes (Other)
  Sender: ALEXION PHARMACEUTICALS
  Company Number: US-AstraZeneca-CH-00878490A

PATIENT
  Sex: Male

DRUGS (1)
  1. FARXIGA [Suspect]
     Active Substance: DAPAGLIFLOZIN PROPANEDIOL
     Dosage: 10 MILLIGRAM, QD
     Route: 065

REACTIONS (9)
  - Perineal pain [Unknown]
  - Dysuria [Unknown]
  - Nephrolithiasis [Unknown]
  - Nausea [Unknown]
  - Bowel movement irregularity [Unknown]
  - Arthritis [Unknown]
  - Therapy cessation [Unknown]
  - Malaise [Unknown]
  - Abdominal pain lower [Unknown]
